FAERS Safety Report 6109588-6 (Version None)
Quarter: 2009Q1

REPORT INFORMATION
  Report Type: 
  Country: None (occurrence: None)
  Receive Date: 20090310
  Receipt Date: 20090227
  Transmission Date: 20090719
  Serious: Yes (Other)
  Sender: FDA-Public Use
  Company Number: PHHY2009GB07626

PATIENT
  Sex: Male

DRUGS (6)
  1. EXELON [Suspect]
     Indication: DEMENTIA ALZHEIMER'S TYPE
     Dosage: 1.5 MG, BID
     Route: 048
     Dates: start: 20080801
  2. EXELON [Suspect]
     Indication: DEMENTIA
     Dosage: 3 MG, BID
     Route: 048
  3. EXELON [Suspect]
     Dosage: 1.5 MG, UNK
     Route: 048
     Dates: start: 20081003
  4. RISPERIDONE [Concomitant]
     Dosage: 1.5MG IN MORNING AND 1MG AT NIGHT
  5. THIAMINE HCL [Concomitant]
     Dosage: 100MG, 2 DF, QID
  6. VITAMIN D [Concomitant]

REACTIONS (8)
  - ABDOMINAL DISTENSION [None]
  - COGNITIVE DISORDER [None]
  - CONFUSIONAL STATE [None]
  - DRUG INTOLERANCE [None]
  - EATING DISORDER [None]
  - GASTROINTESTINAL DISORDER [None]
  - MALAISE [None]
  - WEIGHT DECREASED [None]
